FAERS Safety Report 4800630-9 (Version None)
Quarter: 2005Q4

REPORT INFORMATION
  Report Type: 
  Country: None (occurrence: None)
  Receive Date: 20051013
  Receipt Date: 20051013
  Transmission Date: 20060501
  Serious: Yes (Hospitalization)
  Sender: FDA-Public Use
  Company Number: None

PATIENT
  Age: 46 Year
  Sex: Female
  Weight: 131.5431 kg

DRUGS (1)
  1. LEVAQUIN [Suspect]
     Indication: EAR INFECTION
     Dosage: 500MG ONCE A DAY
     Dates: start: 20050423, end: 20050429

REACTIONS (8)
  - CARDIAC DISORDER [None]
  - COLD SWEAT [None]
  - DEAFNESS [None]
  - DYSPNOEA [None]
  - FATIGUE [None]
  - HYPOAESTHESIA [None]
  - RASH [None]
  - TREMOR [None]
